FAERS Safety Report 5735812-5 (Version None)
Quarter: 2008Q2

REPORT INFORMATION
  Report Type: 
  Country: None (occurrence: None)
  Receive Date: 20080508
  Receipt Date: 20080508
  Transmission Date: 20081010
  Serious: Yes (Disabling)
  Sender: FDA-Public Use
  Company Number: None

PATIENT
  Age: 43 Year
  Sex: Female
  Weight: 65.318 kg

DRUGS (2)
  1. TAXOTERE [Suspect]
     Indication: BREAST CANCER
     Dosage: 115 MG 21 DAYS IV DRIP
     Route: 041
     Dates: start: 20080416, end: 20080507
  2. TAXOTERE [Suspect]

REACTIONS (4)
  - DYSPNOEA [None]
  - FLUSHING [None]
  - HOT FLUSH [None]
  - INFUSION RELATED REACTION [None]
